FAERS Safety Report 17810985 (Version 1)
Quarter: 2020Q2

REPORT INFORMATION
  Report Type: Spontaneous
  Country: CH (occurrence: CH)
  Receive Date: 20200521
  Receipt Date: 20200521
  Transmission Date: 20200714
  Serious: Yes (Hospitalization)
  Sender: FDA-Public Use
  Company Number: CH-ASTRAZENECA-2020SE65543

PATIENT
  Age: 32368 Day
  Sex: Male

DRUGS (3)
  1. SIMVASTATIN MEPHA [Concomitant]
     Active Substance: SIMVASTATIN
     Route: 048
  2. PANTOZOL [Concomitant]
     Active Substance: PANTOPRAZOLE SODIUM
     Route: 048
  3. BRILIQUE [Suspect]
     Active Substance: TICAGRELOR
     Dosage: 60 MG, TWO DAYS
     Route: 048
     Dates: start: 20200403, end: 20200413

REACTIONS (2)
  - Rectal haemorrhage [Recovered/Resolved]
  - Anaemia [Recovering/Resolving]

NARRATIVE: CASE EVENT DATE: 20200413
